FAERS Safety Report 17393885 (Version 3)
Quarter: 2020Q3

REPORT INFORMATION
  Report Type: Other
  Country: DE (occurrence: DE)
  Receive Date: 20200210
  Receipt Date: 20200312
  Transmission Date: 20201105
  Serious: Yes (Death, Hospitalization, Other)
  Sender: FDA-Public Use
  Company Number: DE-CELLTRION INC.-2020DE018358

PATIENT

DRUGS (7)
  1. POLATUZUMAB VEDOTIN. [Suspect]
     Active Substance: POLATUZUMAB VEDOTIN
     Indication: DIFFUSE LARGE B-CELL LYMPHOMA
     Dosage: 1.8 MG/KG EVERY 3 WEEKS
     Route: 041
     Dates: start: 20190722, end: 20191014
  2. ALLOPURINOL. [Concomitant]
     Active Substance: ALLOPURINOL
  3. BISOPROLOL [Concomitant]
     Active Substance: BISOPROLOL
  4. BENDAMUSTINE [Suspect]
     Active Substance: BENDAMUSTINE
     Indication: DIFFUSE LARGE B-CELL LYMPHOMA
     Dosage: 180 MG/M2 EVERY 3 WEEKS
     Route: 042
     Dates: start: 20190722, end: 20191015
  5. RITUXIMAB (UNKNOWN) [Suspect]
     Active Substance: RITUXIMAB
     Indication: DIFFUSE LARGE B-CELL LYMPHOMA
     Dosage: 375 MG/M2 EVERY 3 WEEKS
     Route: 042
     Dates: start: 20190722, end: 20191014
  6. TOREM [TORASEMIDE] [Concomitant]
     Active Substance: TORSEMIDE
  7. ELIQUIS [Concomitant]
     Active Substance: APIXABAN

REACTIONS (25)
  - Disease progression [Fatal]
  - Vomiting [Unknown]
  - C-reactive protein increased [Unknown]
  - Pneumonia [Recovered/Resolved with Sequelae]
  - Duodenitis [Unknown]
  - General physical health deterioration [Unknown]
  - Hypocalcaemia [Not Recovered/Not Resolved]
  - Oesophageal candidiasis [Unknown]
  - Hypokalaemia [Recovered/Resolved]
  - Blood creatinine decreased [Not Recovered/Not Resolved]
  - Hypercalcaemia [Recovered/Resolved with Sequelae]
  - Fatigue [Recovered/Resolved]
  - Cardiac failure [Unknown]
  - Leukopenia [Recovered/Resolved]
  - Anaemia [Not Recovered/Not Resolved]
  - Skin infection [Recovered/Resolved]
  - Abdominal distension [Unknown]
  - Thrombocytopenia [Not Recovered/Not Resolved]
  - Pulmonary oedema [Unknown]
  - Hiatus hernia [Unknown]
  - Hyperuricaemia [Recovered/Resolved]
  - Blood alkaline phosphatase increased [Recovered/Resolved]
  - Decreased appetite [Unknown]
  - Hyperglycaemia [Recovered/Resolved]
  - Gamma-glutamyltransferase increased [Not Recovered/Not Resolved]

NARRATIVE: CASE EVENT DATE: 20191024
